FAERS Safety Report 7190494-3 (Version None)
Quarter: 2010Q4

REPORT INFORMATION
  Report Type: 
  Country: None (occurrence: None)
  Receive Date: 20101213
  Receipt Date: 20101126
  Transmission Date: 20110411
  Serious: Yes (Death)
  Sender: FDA-Public Use
  Company Number: 1000017562

PATIENT
  Age: 67 Year
  Sex: Male

DRUGS (3)
  1. MEMANTINE [Suspect]
     Indication: VASCULAR DEMENTIA
     Dosage: 20 MG (10 MG, 2 IN 1 D), ORAL; 5 MG (5 MG, 1 IN 1 D), ORAL
     Route: 048
     Dates: start: 20100416, end: 20100519
  2. MEMANTINE [Suspect]
     Indication: VASCULAR DEMENTIA
     Dosage: 20 MG (10 MG, 2 IN 1 D), ORAL; 5 MG (5 MG, 1 IN 1 D), ORAL
     Route: 048
     Dates: start: 20100519, end: 20100720
  3. CHINESE TRADITION DRUG PRODUCT [Concomitant]

REACTIONS (2)
  - CEREBROVASCULAR DISORDER [None]
  - DISEASE RECURRENCE [None]
